FAERS Safety Report 15932121 (Version 1)
Quarter: 2019Q1

REPORT INFORMATION
  Report Type: Spontaneous
  Country: US (occurrence: US)
  Receive Date: 20190117
  Receipt Date: 20190117
  Transmission Date: 20190417
  Serious: No
  Sender: FDA-Public Use
  Company Number: None

PATIENT
  Age: 62 Year
  Sex: Female
  Weight: 63.5 kg

DRUGS (4)
  1. DICLOFENAC SODIUM 1% GEL 100GM [Suspect]
     Active Substance: DICLOFENAC SODIUM
     Indication: JOINT SWELLING
     Dosage: ?          OTHER STRENGTH:1% PER GRAM;QUANTITY:4 G GRAM(S);OTHER ROUTE:EXTERNALLY TO AFFECTED AREA?
     Dates: start: 20181101, end: 20181103
  2. BIOTIN [Concomitant]
     Active Substance: BIOTIN
  3. DICLOFENAC SODIUM 1% GEL 100GM [Suspect]
     Active Substance: DICLOFENAC SODIUM
     Indication: INJURY
     Dosage: ?          OTHER STRENGTH:1% PER GRAM;QUANTITY:4 G GRAM(S);OTHER ROUTE:EXTERNALLY TO AFFECTED AREA?
     Dates: start: 20181101, end: 20181103
  4. VITAMIN D [Concomitant]
     Active Substance: CHOLECALCIFEROL

REACTIONS (2)
  - Vein rupture [None]
  - Superficial vein prominence [None]

NARRATIVE: CASE EVENT DATE: 20181103
